FAERS Safety Report 20896223 (Version 2)
Quarter: 2022Q2

REPORT INFORMATION
  Report Type: Spontaneous
  Country: JP (occurrence: JP)
  Receive Date: 20220531
  Receipt Date: 20220608
  Transmission Date: 20220721
  Serious: Yes (Other)
  Sender: FDA-Public Use
  Company Number: JP-GILEAD-2022-0583004

PATIENT
  Age: 84 Year
  Sex: Male
  Weight: 46 kg

DRUGS (3)
  1. VEKLURY [Suspect]
     Active Substance: REMDESIVIR
     Indication: COVID-19
     Dosage: 200 MG, QD
     Route: 041
     Dates: start: 20220518, end: 20220518
  2. VEKLURY [Suspect]
     Active Substance: REMDESIVIR
     Dosage: 100 MG, QD
     Route: 041
     Dates: start: 20220519, end: 20220522
  3. AMPICILLIN SODIUM\SULBACTAM SODIUM [Concomitant]
     Active Substance: AMPICILLIN SODIUM\SULBACTAM SODIUM
     Indication: Pneumonia aspiration
     Dosage: 12, QID
     Route: 041
     Dates: start: 20220520

REACTIONS (1)
  - Hepatic function abnormal [Recovering/Resolving]

NARRATIVE: CASE EVENT DATE: 20220523
